FAERS Safety Report 6341159-9 (Version None)
Quarter: 2009Q3

REPORT INFORMATION
  Report Type: 
  Country: None (occurrence: None)
  Receive Date: 20090904
  Receipt Date: 20090223
  Transmission Date: 20100115
  Serious: No
  Sender: FDA-Public Use
  Company Number: A0770484A

PATIENT
  Age: 70 Year
  Sex: Male

DRUGS (1)
  1. REQUIP [Suspect]
     Indication: DRUG USE FOR UNKNOWN INDICATION
     Route: 048

REACTIONS (5)
  - BINGE EATING [None]
  - EMOTIONAL DISORDER [None]
  - PERSONALITY CHANGE [None]
  - SOMNOLENCE [None]
  - WEIGHT INCREASED [None]
